FAERS Safety Report 7814274-8 (Version None)
Quarter: 2011Q4

REPORT INFORMATION
  Report Type: 
  Country: None (occurrence: None)
  Receive Date: 20111011
  Receipt Date: 20110926
  Transmission Date: 20120403
  Serious: Yes (Hospitalization, Other)
  Sender: FDA-Public Use
  Company Number: VAL_00618_2011

PATIENT
  Age: 32 Year
  Sex: Female
  Weight: 48 kg

DRUGS (1)
  1. CARBAMAZEPINE [Suspect]
     Indication: PRODUCT USED FOR UNKNOWN INDICATION

REACTIONS (20)
  - AREFLEXIA [None]
  - ANTICONVULSANT DRUG LEVEL ABOVE THERAPEUTIC [None]
  - CONTINUOUS HAEMODIAFILTRATION [None]
  - UNRESPONSIVE TO STIMULI [None]
  - GASTROINTESTINAL SOUNDS ABNORMAL [None]
  - ALANINE AMINOTRANSFERASE INCREASED [None]
  - HYPOREFLEXIA [None]
  - HYPOTENSION [None]
  - DEPRESSED LEVEL OF CONSCIOUSNESS [None]
  - HYPOXIA [None]
  - CARDIOVASCULAR DISORDER [None]
  - BLOOD CALCIUM DECREASED [None]
  - HAEMODIALYSIS [None]
  - HYPOTONIA [None]
  - INTENTIONAL OVERDOSE [None]
  - TOXICITY TO VARIOUS AGENTS [None]
  - DRUG LEVEL ABOVE THERAPEUTIC [None]
  - NEUROLOGICAL DECOMPENSATION [None]
  - SUICIDE ATTEMPT [None]
  - GRAND MAL CONVULSION [None]
